FAERS Safety Report 8141654-6 (Version None)
Quarter: 2012Q1

REPORT INFORMATION
  Report Type: 
  Country: None (occurrence: None)
  Receive Date: 20120216
  Receipt Date: 20120209
  Transmission Date: 20120608
  Serious: Yes (Hospitalization)
  Sender: FDA-Public Use
  Company Number: US-UCBSA-051161

PATIENT
  Sex: Female

DRUGS (5)
  1. PLAVIX [Concomitant]
  2. ZOCOR [Concomitant]
     Dosage: DAILY DOSE: 20 MG
  3. ARICEPT [Concomitant]
     Indication: CENTRAL NERVOUS SYSTEM LYMPHOMA
     Dosage: DAILY DOSE: 23 MG
  4. VIMPAT [Suspect]
     Dates: start: 20120101, end: 20120101
  5. KEPPRA [Suspect]
     Dosage: 1000 MG IN AM, 1500 MG IN PM

REACTIONS (3)
  - LETHARGY [None]
  - PANCREATIC DISORDER [None]
  - NAUSEA [None]
